FAERS Safety Report 6029901-8 (Version None)
Quarter: 2009Q1

REPORT INFORMATION
  Report Type: 
  Country: None (occurrence: None)
  Receive Date: 20090105
  Receipt Date: 20090105
  Transmission Date: 20090719
  Serious: Yes (Other)
  Sender: FDA-Public Use
  Company Number: None

PATIENT
  Sex: Female

DRUGS (1)
  1. CLINDAMYCIN HCL [Suspect]
     Indication: TOOTH INFECTION
     Dosage: 1 CAPSULE 4 TIMES A DAY PO
     Route: 048
     Dates: start: 20081110, end: 20081125

REACTIONS (4)
  - BACTERIAL INFECTION [None]
  - COLITIS [None]
  - NAUSEA [None]
  - VOMITING [None]
